FAERS Safety Report 9934620 (Version 1)
Quarter: 2014Q1

REPORT INFORMATION
  Report Type: Spontaneous
  Country: FR (occurrence: FR)
  Receive Date: 20140228
  Receipt Date: 20140228
  Transmission Date: 20141002
  Serious: Yes (Hospitalization)
  Sender: FDA-Public Use
  Company Number: PHHY2014FR024307

PATIENT
  Age: 20 Year
  Sex: Female

DRUGS (3)
  1. GILENYA [Suspect]
     Indication: MULTIPLE SCLEROSIS
     Dosage: 0.5 MG, QD
     Route: 048
     Dates: start: 201310, end: 20131130
  2. COCAINE [Suspect]
     Dosage: 1 DF, ONCE/SINGLE
     Dates: start: 20131128, end: 20131128
  3. PARACETAMOL [Concomitant]
     Dosage: 1 G, PRN
     Route: 048

REACTIONS (1)
  - Status epilepticus [Recovered/Resolved]
